FAERS Safety Report 8333951-6 (Version None)
Quarter: 2012Q2

REPORT INFORMATION
  Report Type: 
  Country: None (occurrence: None)
  Receive Date: 20120503
  Receipt Date: 20120425
  Transmission Date: 20120825
  Serious: Yes (Death, Other)
  Sender: FDA-Public Use
  Company Number: US-ROCHE-1042285

PATIENT
  Sex: Male
  Weight: 71.959 kg

DRUGS (6)
  1. MOBIC [Concomitant]
     Dosage: PRN
  2. IPILIMUMAB [Concomitant]
  3. ZELBORAF [Suspect]
     Indication: MALIGNANT MELANOMA
     Route: 048
     Dates: start: 20111130, end: 20120220
  4. ZOCOR [Concomitant]
     Dosage: QD
  5. LORTAB [Concomitant]
     Dosage: 7.5
     Dates: start: 20111223
  6. ZOFRAN [Concomitant]
     Dosage: PRN

REACTIONS (2)
  - DISEASE PROGRESSION [None]
  - MALIGNANT MELANOMA [None]
